FAERS Safety Report 4337499-5 (Version None)
Quarter: 2004Q2

REPORT INFORMATION
  Report Type: 
  Country: None (occurrence: None)
  Receive Date: 20040412
  Receipt Date: 20040412
  Transmission Date: 20050107
  Serious: Yes (Other)
  Sender: FDA-Public Use
  Company Number: None

PATIENT
  Age: 52 Year
  Sex: Male
  Weight: 92.0802 kg

DRUGS (4)
  1. ADVAIR DISKUS 250/50 [Suspect]
     Indication: BRONCHOSPASM
     Dosage: 500/50 BID BUCCAL
     Route: 002
     Dates: start: 20040126, end: 20040208
  2. ADVAIR DISKUS 250/50 [Suspect]
     Dosage: 250/50 BID BUCCAL
     Route: 002
     Dates: start: 20040209, end: 20040219
  3. MAXAIR [Concomitant]
  4. SINGULAIR [Concomitant]

REACTIONS (11)
  - BACK PAIN [None]
  - BLOOD PRESSURE INCREASED [None]
  - CHEST PAIN [None]
  - CONDITION AGGRAVATED [None]
  - DIZZINESS [None]
  - DYSPHONIA [None]
  - HEADACHE [None]
  - HOARSENESS [None]
  - IMPAIRED WORK ABILITY [None]
  - SKIN DISCOLOURATION [None]
  - SUPRAVENTRICULAR EXTRASYSTOLES [None]
